FAERS Safety Report 12335309 (Version 5)
Quarter: 2016Q2

REPORT INFORMATION
  Report Type: Report from Study
  Country: CA (occurrence: CA)
  Receive Date: 20160504
  Receipt Date: 20160603
  Transmission Date: 20160815
  Serious: Yes (Hospitalization, Other)
  Sender: FDA-Public Use
  Company Number: CA-GILEAD-2016-0211480

PATIENT
  Age: 56 Year
  Sex: Male

DRUGS (6)
  1. SPIRONOLACTONE. [Concomitant]
     Active Substance: SPIRONOLACTONE
     Indication: PRODUCT USED FOR UNKNOWN INDICATION
     Dosage: UNK
     Dates: start: 2015
  2. IBAVYR [Suspect]
     Active Substance: RIBAVIRIN
     Indication: CHRONIC HEPATITIS C
     Dosage: 1200 MG, QD
     Route: 048
     Dates: start: 20160218, end: 20160330
  3. PANTOPRAZOLE [Concomitant]
     Active Substance: PANTOPRAZOLE SODIUM
     Indication: PRODUCT USED FOR UNKNOWN INDICATION
     Dosage: UNK
     Dates: start: 20160404
  4. IBAVYR [Suspect]
     Active Substance: RIBAVIRIN
     Dosage: 900 MG, QD
     Route: 048
     Dates: start: 201604, end: 20160511
  5. IBAVYR [Suspect]
     Active Substance: RIBAVIRIN
     Dosage: 800 MG, QD
     Route: 048
     Dates: start: 20160331
  6. SOFOSBUVIR [Suspect]
     Active Substance: SOFOSBUVIR
     Indication: CHRONIC HEPATITIS C
     Dosage: 400 MG, UNK
     Route: 048
     Dates: start: 20160218, end: 20160511

REACTIONS (7)
  - Blood folate decreased [Recovered/Resolved]
  - Haemoglobin decreased [Unknown]
  - Blood potassium decreased [Recovered/Resolved]
  - Transfusion [Unknown]
  - Hepatic function abnormal [Unknown]
  - Vitamin B12 decreased [Recovered/Resolved]
  - Liver transplant [Unknown]

NARRATIVE: CASE EVENT DATE: 2016
